FAERS Safety Report 6176639-2 (Version None)
Quarter: 2009Q2

REPORT INFORMATION
  Report Type: 
  Country: None (occurrence: None)
  Receive Date: 20090501
  Receipt Date: 20081021
  Transmission Date: 20091009
  Serious: Yes (Hospitalization)
  Sender: FDA-Public Use
  Company Number: IT-ALEXION-A200800301

PATIENT

DRUGS (3)
  1. SOLIRIS [Suspect]
     Indication: PAROXYSMAL NOCTURNAL HAEMOGLOBINURIA
     Dosage: 900 MG, SINGLE
     Route: 042
     Dates: start: 20071109, end: 20071109
  2. SOLIRIS [Suspect]
     Dosage: UNK, SINGLE
     Route: 042
     Dates: start: 20080721, end: 20080721
  3. FOLINA  /00024201/ [Concomitant]
     Dosage: 500 UG, UNK
     Route: 048
     Dates: start: 20040101

REACTIONS (2)
  - DEHYDRATION [None]
  - HAEMATURIA [None]
